FAERS Safety Report 9457907 (Version 2)
Quarter: 2013Q3

REPORT INFORMATION
  Report Type: Report from Study
  Country: DE (occurrence: DE)
  Receive Date: 20130814
  Receipt Date: 20130820
  Transmission Date: 20140515
  Serious: Yes (Hospitalization)
  Sender: FDA-Public Use
  Company Number: DE-ASTELLAS-2013US008521

PATIENT
  Age: 12 Year
  Sex: Female
  Weight: 51 kg

DRUGS (2)
  1. TACROLIMUS OINTMENT [Suspect]
     Indication: DERMATITIS ATOPIC
     Dosage: 0.03 %, WEEKLY
     Route: 061
     Dates: start: 20100930
  2. TACROLIMUS OINTMENT [Suspect]
     Dosage: ONCE A DAY, TWICE WEEKLY
     Route: 061
     Dates: start: 20120915

REACTIONS (1)
  - Ovarian cyst ruptured [Recovered/Resolved]
